FAERS Safety Report 5868357-2 (Version None)
Quarter: 2008Q3

REPORT INFORMATION
  Report Type: 
  Country: None (occurrence: None)
  Receive Date: 20080828
  Receipt Date: 20080815
  Transmission Date: 20090109
  Serious: Yes (Other)
  Sender: FDA-Public Use
  Company Number: 235805J08USA

PATIENT
  Age: 55 Year
  Sex: Female
  Weight: 74.8435 kg

DRUGS (13)
  1. REBIF [Suspect]
     Indication: MULTIPLE SCLEROSIS
     Dosage: 44 MCG, 3 IN 1 WEEKS, SUBCUTANEOUS
     Route: 058
     Dates: start: 20070502, end: 20080530
  2. PAXIL [Concomitant]
  3. XANAX [Concomitant]
  4. KEPPRA [Concomitant]
  5. AVINZA [Concomitant]
  6. CLARINEX [Concomitant]
  7. BACLOFEN [Concomitant]
  8. BETHANECHOL (BETHANECHOL) [Concomitant]
  9. NEXIUM [Concomitant]
  10. LYRICA [Concomitant]
  11. LORTAB [Concomitant]
  12. NITROFURANTOIN [Concomitant]
  13. SYMBICORT INHALER (BUDESONIDE W/FORMOTEROL FUMARATE) [Concomitant]

REACTIONS (5)
  - BLOOD CHOLESTEROL INCREASED [None]
  - MALAISE [None]
  - NAUSEA [None]
  - OSTEOPOROSIS [None]
  - TYPE 2 DIABETES MELLITUS [None]
